FAERS Safety Report 5726123-2 (Version None)
Quarter: 2008Q2

REPORT INFORMATION
  Report Type: 
  Country: None (occurrence: None)
  Receive Date: 20080501
  Receipt Date: 20080501
  Transmission Date: 20081010
  Serious: Yes (Life-Threatening, Disabling, Other)
  Sender: FDA-Public Use
  Company Number: None

PATIENT
  Sex: Male
  Weight: 74.8435 kg

DRUGS (1)
  1. DIGITEK 250 MCB TABLET BER  250 MCG  BERTEK PHARM. [Suspect]
     Indication: DRUG THERAPY
     Dosage: 1 TABLET ONCE DAILY PO
     Route: 048
     Dates: start: 20080404, end: 20080430

REACTIONS (2)
  - CARDIAC DISORDER [None]
  - PHARMACEUTICAL PRODUCT COMPLAINT [None]
